FAERS Safety Report 22336382 (Version 1)
Quarter: 2023Q2

REPORT INFORMATION
  Report Type: Spontaneous
  Country: US (occurrence: US)
  Receive Date: 20230518
  Receipt Date: 20230518
  Transmission Date: 20230722
  Serious: Yes (Other)
  Sender: FDA-Public Use
  Company Number: US-STRIDES ARCOLAB LIMITED-2023SP006475

PATIENT
  Age: 75 Year
  Sex: Male

DRUGS (7)
  1. CYCLOSPORINE [Suspect]
     Active Substance: CYCLOSPORINE
     Indication: Pyoderma gangrenosum
     Dosage: 5 MILLIGRAM/KILOGRAM
     Route: 065
  2. PREDNISOLONE [Suspect]
     Active Substance: PREDNISOLONE
     Indication: Pyoderma gangrenosum
     Dosage: 60 MILLIGRAM PER DAY
     Route: 065
  3. PREDNISOLONE [Suspect]
     Active Substance: PREDNISOLONE
     Dosage: 20 MILLIGRAM PER DAY
     Route: 065
  4. ADALIMUMAB [Suspect]
     Active Substance: ADALIMUMAB
     Indication: Pyoderma gangrenosum
     Dosage: 40 MILLIGRAM, EVERY 2 WEEKS
     Route: 065
  5. ADALIMUMAB [Suspect]
     Active Substance: ADALIMUMAB
     Dosage: 40 MILLIGRAM, ONCE A WEEK
     Route: 065
  6. TRIAMCINOLONE [Suspect]
     Active Substance: TRIAMCINOLONE
     Indication: Pyoderma gangrenosum
     Dosage: UNK, 3 ROUNDS
     Route: 026
  7. SPESOLIMAB [Suspect]
     Active Substance: SPESOLIMAB
     Indication: Pyoderma gangrenosum
     Dosage: 900 MILLIGRAM
     Route: 065

REACTIONS (3)
  - Epididymitis [Unknown]
  - Drug ineffective [Unknown]
  - Off label use [Unknown]
